FAERS Safety Report 7778064-7 (Version None)
Quarter: 2011Q3

REPORT INFORMATION
  Report Type: 
  Country: None (occurrence: None)
  Receive Date: 20110922
  Receipt Date: 20110914
  Transmission Date: 20111222
  Serious: Yes (Other)
  Sender: FDA-Public Use
  Company Number: GER/UKI/11/0020583

PATIENT
  Age: 21 Year
  Sex: Female

DRUGS (3)
  1. CETIRIZINE [Suspect]
     Indication: OEDEMA PERIPHERAL
     Dosage: 1 IN 1 D, ORAL
     Route: 048
     Dates: start: 20061116, end: 20110501
  2. CETIRIZINE [Suspect]
     Indication: SWELLING FACE
     Dosage: 1 IN 1 D, ORAL
     Route: 048
     Dates: start: 20061116, end: 20110501
  3. LAMICTAL [Concomitant]

REACTIONS (1)
  - EPILEPSY [None]
